FAERS Safety Report 25866027 (Version 3)
Quarter: 2025Q4

REPORT INFORMATION
  Report Type: Spontaneous
  Country: US (occurrence: US)
  Receive Date: 20250930
  Receipt Date: 20251027
  Transmission Date: 20260118
  Serious: Yes (Other)
  Sender: JOHNSON AND JOHNSON
  Company Number: US-JNJFOC-20250932611

PATIENT
  Age: 46 Year
  Sex: Male

DRUGS (1)
  1. TREMFYA [Suspect]
     Active Substance: GUSELKUMAB
     Indication: Colitis ulcerative
     Route: 065
     Dates: start: 202501

REACTIONS (5)
  - Colitis ulcerative [Unknown]
  - Pancreatic carcinoma [Unknown]
  - Device deployment issue [Unknown]
  - Accidental exposure to product [Unknown]
  - Product dose omission issue [Unknown]

NARRATIVE: CASE EVENT DATE: 20250101
